FAERS Safety Report 6694661-4 (Version None)
Quarter: 2010Q2

REPORT INFORMATION
  Report Type: 
  Country: None (occurrence: None)
  Receive Date: 20100423
  Receipt Date: 20100421
  Transmission Date: 20101027
  Serious: Yes (Hospitalization)
  Sender: FDA-Public Use
  Company Number: GXKR2009DE08848

PATIENT
  Age: 84 Year
  Sex: Female
  Weight: 73 kg

DRUGS (12)
  1. ACETYLSALICYLIC ACID SRT [Suspect]
     Indication: CARDIOVASCULAR EVENT PROPHYLAXIS
     Dosage: 100 MG, QD
     Route: 048
     Dates: start: 20050101, end: 20090424
  2. PREDNISOLONE [Suspect]
     Indication: POLYMYALGIA RHEUMATICA
     Dosage: 20 MG, QD
     Route: 048
     Dates: start: 20090401, end: 20090410
  3. PREDNISOLONE [Suspect]
     Dosage: 15 MG/DAILY
     Route: 048
     Dates: start: 20090411, end: 20090420
  4. PREDNISOLONE [Suspect]
     Dosage: 10 MG/DAILY
     Route: 048
     Dates: start: 20090421
  5. VOLTAREN [Suspect]
     Indication: OSTEOARTHRITIS
     Dosage: 75 MG, BID
     Route: 048
     Dates: start: 19950101, end: 20090424
  6. ZOLPIDEM [Concomitant]
     Indication: SLEEP DISORDER THERAPY
  7. XIPAMIDE [Concomitant]
     Indication: HYPERTENSION
  8. QUINAPRIL HYDROCHLORIDE AND HYDROCHLOROTHIAZIDE [Concomitant]
     Indication: HYPERTENSION
  9. PANTOZOL [Concomitant]
     Indication: PROPHYLAXIS AGAINST GASTROINTESTINAL ULCER
  10. METFORMIN [Concomitant]
     Indication: TYPE 2 DIABETES MELLITUS
  11. FOSAMAX [Concomitant]
  12. DILZEM ^ELAN^ [Concomitant]
     Indication: HYPERTENSION

REACTIONS (1)
  - INTESTINAL ULCER [None]
